FAERS Safety Report 12233178 (Version 3)
Quarter: 2016Q2

REPORT INFORMATION
  Report Type: Spontaneous
  Country: US (occurrence: US)
  Receive Date: 20160404
  Receipt Date: 20160413
  Transmission Date: 20160815
  Serious: Yes (Other)
  Sender: FDA-Public Use
  Company Number: US-CIPLA LTD.-2016US03101

PATIENT

DRUGS (2)
  1. AMLODIPINE [Suspect]
     Active Substance: AMLODIPINE BESYLATE
     Dosage: 2.5 MG, UNK
     Route: 048
  2. SYNTHROID 125 [Concomitant]
     Indication: THYROID DISORDER
     Dosage: 125 MCG, QD
     Route: 065

REACTIONS (2)
  - Angiopathy [Not Recovered/Not Resolved]
  - Alopecia [Not Recovered/Not Resolved]
